FAERS Safety Report 6215014-9 (Version None)
Quarter: 2009Q2

REPORT INFORMATION
  Report Type: 
  Country: None (occurrence: None)
  Receive Date: 20090604
  Receipt Date: 20080820
  Transmission Date: 20091009
  Serious: No
  Sender: FDA-Public Use
  Company Number: US-ASTRAZENECA-2008UW17100

PATIENT
  Sex: Female

DRUGS (4)
  1. OMEPRAZOLE [Suspect]
     Indication: GASTROOESOPHAGEAL REFLUX DISEASE
     Dosage: 40 MG
     Route: 048
  2. OMEPRAZOLE [Suspect]
     Dosage: 40 MG - GENERIC
     Route: 048
  3. LEVAQUIN [Concomitant]
  4. NASONEX [Concomitant]

REACTIONS (1)
  - SENSATION OF FOREIGN BODY [None]
